FAERS Safety Report 6248679-6 (Version None)
Quarter: 2009Q2

REPORT INFORMATION
  Report Type: 
  Country: None (occurrence: None)
  Receive Date: 20090624
  Receipt Date: 20090624
  Transmission Date: 20091009
  Serious: No
  Sender: FDA-Public Use
  Company Number: None

PATIENT
  Age: 74 Year
  Sex: Male
  Weight: 57 kg

DRUGS (5)
  1. INSULIN ASPART [Suspect]
     Indication: TYPE 1 DIABETES MELLITUS
     Dosage: SSI-M QID PRN SQ
     Route: 058
     Dates: start: 20090514, end: 20090524
  2. REGULAR INSULIN [Suspect]
     Indication: TYPE 1 DIABETES MELLITUS
     Dosage: 1 UNITS SQ  Q6 HRS W/TEN
     Route: 058
     Dates: start: 20090518
  3. CEFEPIME [Concomitant]
  4. LANSOPRAZOLE [Concomitant]
  5. OXYCODONE [Concomitant]

REACTIONS (2)
  - BLOOD GLUCOSE DECREASED [None]
  - BLOOD GLUCOSE INCREASED [None]
